FAERS Safety Report 6518965-0 (Version None)
Quarter: 2009Q4

REPORT INFORMATION
  Report Type: 
  Country: None (occurrence: None)
  Receive Date: 20091228
  Receipt Date: 20091216
  Transmission Date: 20100525
  Serious: Yes (Other)
  Sender: FDA-Public Use
  Company Number: JP-SP-2008-01929

PATIENT
  Age: 70 Year
  Sex: Male

DRUGS (3)
  1. IMMUCYST [Suspect]
     Indication: BLADDER CANCER
     Route: 043
     Dates: start: 20061027, end: 20061215
  2. FLAVOXATE HYDROCHLORIDE [Concomitant]
     Route: 048
  3. TAMSULOSIN HYDROCHLORIDE [Concomitant]
     Route: 048

REACTIONS (1)
  - BLADDER GRANULOMA [None]
